FAERS Safety Report 8501121-4 (Version None)
Quarter: 2012Q3

REPORT INFORMATION
  Report Type: 
  Country: None (occurrence: None)
  Receive Date: 20120710
  Receipt Date: 20120627
  Transmission Date: 20120928
  Serious: No
  Sender: FDA-Public Use
  Company Number: US-ASTRAZENECA-2012SE43570

PATIENT
  Age: 86 Year
  Sex: Male
  Weight: 68 kg

DRUGS (2)
  1. OMEPRAZOLE [Suspect]
     Indication: DYSPEPSIA
     Dosage: EVERY DAY
     Route: 048
     Dates: start: 20110101
  2. PROSCAR [Concomitant]
     Indication: PROSTATIC DISORDER

REACTIONS (2)
  - DRUG DOSE OMISSION [None]
  - ABDOMINAL DISTENSION [None]
